FAERS Safety Report 5767841-X (Version None)
Quarter: 2008Q2

REPORT INFORMATION
  Report Type: 
  Country: None (occurrence: None)
  Receive Date: 20080612
  Receipt Date: 20080604
  Transmission Date: 20081010
  Serious: Yes (Other)
  Sender: FDA-Public Use
  Company Number: PHFR2008GB01424

PATIENT
  Sex: Male

DRUGS (7)
  1. CLOZARIL [Suspect]
     Indication: SCHIZOPHRENIA
     Dosage: 225MG/DAY
     Route: 048
     Dates: start: 20080304
  2. DULOXETINE [Concomitant]
     Indication: DEPRESSION
     Dosage: 60 MG/DAY
     Route: 048
  3. NITRAZEPAM [Concomitant]
     Indication: SEDATION
     Dosage: 5 MG / DAY
     Route: 048
  4. LACTULOSE [Concomitant]
     Indication: CONSTIPATION
     Dosage: 15 ML / DAY
     Route: 048
  5. SENNA [Concomitant]
     Indication: CONSTIPATION
     Dosage: 15 MG / DAY
     Route: 048
  6. NULYTELY [Concomitant]
     Indication: CONSTIPATION
     Dosage: UNK
     Route: 048
  7. HYOSCINE HBR HYT [Concomitant]
     Indication: CONSTIPATION
     Dosage: 300UG
     Route: 048

REACTIONS (7)
  - BLOOD UREA INCREASED [None]
  - COGNITIVE DISORDER [None]
  - FALL [None]
  - GAMMA-GLUTAMYLTRANSFERASE INCREASED [None]
  - RED BLOOD CELL SEDIMENTATION RATE INCREASED [None]
  - SEDATION [None]
  - THINKING ABNORMAL [None]
